FAERS Safety Report 8374861-8 (Version None)
Quarter: 2012Q2

REPORT INFORMATION
  Report Type: 
  Country: None (occurrence: None)
  Receive Date: 20120521
  Receipt Date: 20120517
  Transmission Date: 20120825
  Serious: Yes (Death, Hospitalization)
  Sender: FDA-Public Use
  Company Number: US-GILEAD-2012-0055243

PATIENT
  Age: 61 Year
  Sex: Female

DRUGS (6)
  1. WARFARIN SODIUM [Concomitant]
  2. FLUCONAZOLE [Concomitant]
  3. LEVOTHYROXINE SODIUM [Concomitant]
  4. LETAIRIS [Suspect]
     Indication: PULMONARY HYPERTENSION
     Dosage: 10 MG, UNK
     Route: 048
     Dates: start: 20110301, end: 20120501
  5. OMEPRAZOLE [Concomitant]
  6. PERCOCET [Concomitant]

REACTIONS (6)
  - FAILURE TO THRIVE [None]
  - CACHEXIA [None]
  - APHAGIA [None]
  - DEATH [None]
  - SYSTEMIC SCLEROSIS [None]
  - WEIGHT DECREASED [None]
